FAERS Safety Report 13166138 (Version 1)
Quarter: 2017Q1

REPORT INFORMATION
  Report Type: Report from Study
  Country: US (occurrence: US)
  Receive Date: 20170131
  Receipt Date: 20170131
  Transmission Date: 20170428
  Serious: Yes (Hospitalization)
  Sender: FDA-Public Use
  Company Number: US-ROCHE-1885851

PATIENT
  Sex: Female
  Weight: 44.04 kg

DRUGS (4)
  1. PULMOZYME [Suspect]
     Active Substance: DORNASE ALFA
     Route: 055
     Dates: start: 201610
  2. PANCREASE ENZYMES [Concomitant]
     Indication: CYSTIC FIBROSIS
     Dosage: ONGOING ; YES
     Route: 048
  3. PULMOZYME [Suspect]
     Active Substance: DORNASE ALFA
     Indication: CYSTIC FIBROSIS
     Dosage: 30 PACKS
     Route: 055
     Dates: start: 201610
  4. SODIUM CHLORIDE. [Concomitant]
     Active Substance: SODIUM CHLORIDE
     Indication: CYSTIC FIBROSIS
     Dosage: ONGOING; YES
     Route: 055

REACTIONS (1)
  - Mitral valve disease [Recovering/Resolving]
